FAERS Safety Report 6142756-6 (Version None)
Quarter: 2009Q2

REPORT INFORMATION
  Report Type: 
  Country: None (occurrence: None)
  Receive Date: 20090403
  Receipt Date: 20090403
  Transmission Date: 20091009
  Serious: Yes (Hospitalization)
  Sender: FDA-Public Use
  Company Number: PHHO2003CH15032

PATIENT
  Sex: Female
  Weight: 70 kg

DRUGS (1)
  1. CGS 20267 T30748+ [Suspect]
     Indication: BREAST CANCER
     Dosage: 2.5 MG, QD
     Route: 048
     Dates: start: 20031028

REACTIONS (6)
  - BIOPSY ENDOMETRIUM [None]
  - ENDOCERVICAL CURETTAGE [None]
  - ENDOMETRIAL HYPERTROPHY [None]
  - HYSTEROSCOPY [None]
  - POLYPECTOMY [None]
  - UTERINE POLYP [None]
